FAERS Safety Report 23396497 (Version 7)
Quarter: 2024Q1

REPORT INFORMATION
  Report Type: Report from Study
  Country: CA (occurrence: CA)
  Receive Date: 20240112
  Receipt Date: 20240314
  Transmission Date: 20240409
  Serious: Yes (Other)
  Sender: FDA-Public Use
  Company Number: CA-BEH-2023163062

PATIENT
  Age: 83 Year
  Sex: Female
  Weight: 78 kg

DRUGS (10)
  1. HAEMATE P [Suspect]
     Active Substance: ANTIHEMOPHILIC FACTOR HUMAN
     Indication: Von Willebrand^s disease
     Dosage: 9000 INTERNATIONAL UNIT, BIW
     Route: 042
     Dates: start: 20191220
  2. HAEMATE P [Suspect]
     Active Substance: ANTIHEMOPHILIC FACTOR HUMAN
     Dosage: UNK
     Route: 065
     Dates: start: 20231119
  3. HAEMATE P [Suspect]
     Active Substance: ANTIHEMOPHILIC FACTOR HUMAN
     Dosage: UNK
     Route: 042
     Dates: start: 20231127
  4. HAEMATE P [Suspect]
     Active Substance: ANTIHEMOPHILIC FACTOR HUMAN
     Dosage: UNK
     Route: 042
     Dates: start: 20231204
  5. HAEMATE P [Suspect]
     Active Substance: ANTIHEMOPHILIC FACTOR HUMAN
     Dosage: UNK
     Route: 042
     Dates: start: 20240115
  6. HAEMATE P [Suspect]
     Active Substance: ANTIHEMOPHILIC FACTOR HUMAN
     Dosage: UNK
     Route: 042
     Dates: start: 20240205
  7. HAEMATE P [Suspect]
     Active Substance: ANTIHEMOPHILIC FACTOR HUMAN
     Dosage: UNK
     Route: 065
     Dates: start: 20240212
  8. HAEMATE P [Suspect]
     Active Substance: ANTIHEMOPHILIC FACTOR HUMAN
     Dosage: 5000 INTERNATIONAL UNIT, BIW
     Route: 042
     Dates: start: 20191220
  9. HAEMATE P [Suspect]
     Active Substance: ANTIHEMOPHILIC FACTOR HUMAN
     Dosage: UNK
     Route: 065
     Dates: start: 20240218
  10. HAEMATE P [Suspect]
     Active Substance: ANTIHEMOPHILIC FACTOR HUMAN
     Dosage: UNK
     Route: 065
     Dates: start: 20240304

REACTIONS (16)
  - Injection site bruising [Unknown]
  - Injection site bruising [Unknown]
  - Back pain [Recovering/Resolving]
  - Fall [Unknown]
  - Erythema [Unknown]
  - Constipation [Recovering/Resolving]
  - Decreased appetite [Unknown]
  - Diarrhoea [Unknown]
  - Weight decreased [Unknown]
  - Nausea [Unknown]
  - Back pain [Recovering/Resolving]
  - Spinal fracture [Unknown]
  - Epistaxis [Recovered/Resolved]
  - Nasal dryness [Unknown]
  - Limb mass [Unknown]
  - Post procedural haemorrhage [Recovered/Resolved]

NARRATIVE: CASE EVENT DATE: 20230101
